FAERS Safety Report 5421165-9 (Version None)
Quarter: 2007Q3

REPORT INFORMATION
  Report Type: 
  Country: None (occurrence: None)
  Receive Date: 20070821
  Receipt Date: 20070810
  Transmission Date: 20080115
  Serious: Yes (Other)
  Sender: FDA-Public Use
  Company Number: CA-JNJFOC-20070802672

PATIENT
  Sex: Female
  Weight: 62 kg

DRUGS (9)
  1. REMICADE [Suspect]
     Indication: DRUG USE FOR UNKNOWN INDICATION
     Dosage: 5TH INFUSION
     Route: 042
  2. PREDNISONE TAB [Concomitant]
     Dosage: 20 YEARS
  3. METFORMIN HCL [Concomitant]
  4. GLYBURIDE [Concomitant]
  5. AVANDIA [Concomitant]
  6. CRESTOR [Concomitant]
  7. HYDROXYQUINOLINE [Concomitant]
  8. BENEDRYL [Concomitant]
     Indication: PREMEDICATION
     Route: 042
  9. TYLENOL [Concomitant]
     Indication: PREMEDICATION
     Route: 042

REACTIONS (4)
  - FEMUR FRACTURE [None]
  - HIP SURGERY [None]
  - PRURITUS [None]
  - RASH [None]
